FAERS Safety Report 18593706 (Version 2)
Quarter: 2022Q1

REPORT INFORMATION
  Report Type: Spontaneous
  Country: FR (occurrence: FR)
  Receive Date: 20201208
  Receipt Date: 20220328
  Transmission Date: 20220423
  Serious: Yes (Other)
  Sender: FDA-Public Use
  Company Number: None

PATIENT
  Age: 63 Year
  Sex: Female
  Weight: 86 kg

DRUGS (2)
  1. LEVETIRACETAM [Suspect]
     Active Substance: LEVETIRACETAM
     Indication: Epilepsy
     Dosage: 1000 MG DAILY
     Route: 048
     Dates: end: 20201208
  2. CARBAMAZEPINE [Suspect]
     Active Substance: CARBAMAZEPINE
     Indication: Epilepsy
     Dosage: 400 MILLIGRAM, 2X/DAY (BID)
     Route: 048

REACTIONS (1)
  - Pancytopenia [Unknown]

NARRATIVE: CASE EVENT DATE: 20201101
